FAERS Safety Report 11806400 (Version 1)
Quarter: 2015Q4

REPORT INFORMATION
  Report Type: Report from Study
  Country: AT (occurrence: AT)
  Receive Date: 20151207
  Receipt Date: 20151207
  Transmission Date: 20160305
  Serious: Yes (Other)
  Sender: FDA-Public Use
  Company Number: AT-ROCHE-1639451

PATIENT
  Age: 76 Year
  Sex: Male

DRUGS (4)
  1. COBIMETINIB [Suspect]
     Active Substance: COBIMETINIB
     Dosage: PAUSED FOR 3 WEEKS THEN DISCONTINUED
     Route: 048
     Dates: end: 20150603
  2. VEMURAFENIB [Suspect]
     Active Substance: VEMURAFENIB
     Dosage: REDUCED TO 50 % FOR 4 WEEKS THEN DISCONTINUED
     Route: 048
     Dates: end: 20150603
  3. COBIMETINIB [Suspect]
     Active Substance: COBIMETINIB
     Indication: METASTATIC MALIGNANT MELANOMA
     Dosage: 3-0-0
     Route: 048
     Dates: start: 20150514
  4. VEMURAFENIB [Suspect]
     Active Substance: VEMURAFENIB
     Indication: METASTATIC MALIGNANT MELANOMA
     Route: 048
     Dates: start: 20150422, end: 2015

REACTIONS (2)
  - Renal impairment [Recovered/Resolved]
  - Diarrhoea [Recovered/Resolved]

NARRATIVE: CASE EVENT DATE: 20150513
